FAERS Safety Report 7947415 (Version 4)
Quarter: 2016Q3

REPORT INFORMATION
  Report Type: Report from Study
  Country: FR (occurrence: FR)
  Receive Date: 20110517
  Receipt Date: 20160725
  Transmission Date: 20161109
  Serious: Yes (Hospitalization)
  Sender: FDA-Public Use
  Company Number: FR-JNJFOC-20110500942

PATIENT
  Age: 14 Year
  Sex: Male
  Weight: 35.8 kg

DRUGS (10)
  1. INFLIXIMAB, RECOMBINANT [Suspect]
     Active Substance: INFLIXIMAB
     Indication: CROHN^S DISEASE
     Route: 042
     Dates: start: 20060929, end: 20061113
  2. FOLIC ACID. [Concomitant]
     Active Substance: FOLIC ACID
  3. AZATHIOPRINE. [Concomitant]
     Active Substance: AZATHIOPRINE
  4. HUMIRA [Concomitant]
     Active Substance: ADALIMUMAB
     Dates: start: 20100216
  5. INFLIXIMAB, RECOMBINANT [Suspect]
     Active Substance: INFLIXIMAB
     Indication: CROHN^S DISEASE
     Route: 042
     Dates: start: 20110224
  6. HUMIRA [Concomitant]
     Active Substance: ADALIMUMAB
     Dates: start: 20091216
  7. FUMAFER [Concomitant]
     Active Substance: FERROUS FUMARATE
  8. PREDNISONE. [Concomitant]
     Active Substance: PREDNISONE
  9. GROWTH HORMONE [Concomitant]
     Active Substance: SOMATROPIN
  10. CALCIUM WITH VITAMIN D [Concomitant]
     Active Substance: CALCIUM\VITAMIN D

REACTIONS (2)
  - Large intestinal stenosis [Recovered/Resolved]
  - Crohn^s disease [Recovered/Resolved]

NARRATIVE: CASE EVENT DATE: 20100218
